FAERS Safety Report 17689513 (Version 1)
Quarter: 2020Q2

REPORT INFORMATION
  Report Type: Spontaneous
  Country: US (occurrence: US)
  Receive Date: 20200421
  Receipt Date: 20200421
  Transmission Date: 20200714
  Serious: No
  Sender: FDA-Public Use
  Company Number: None

PATIENT
  Age: 74 Year
  Sex: Female
  Weight: 62.1 kg

DRUGS (16)
  1. VENTOLIN HFA [Concomitant]
     Active Substance: ALBUTEROL SULFATE
  2. VELCADE [Concomitant]
     Active Substance: BORTEZOMIB
  3. MORPHINE SULFATE. [Concomitant]
     Active Substance: MORPHINE SULFATE
  4. DEXAMETHASONE. [Suspect]
     Active Substance: DEXAMETHASONE
     Indication: PLASMA CELL MYELOMA
     Dosage: ?          OTHER FREQUENCY:DAY 1, DAY 8 15;?
     Route: 048
     Dates: start: 20200117, end: 20200421
  5. NINLARO [Concomitant]
     Active Substance: IXAZOMIB CITRATE
  6. VERAPAMIL [Concomitant]
     Active Substance: VERAPAMIL HYDROCHLORIDE
  7. LEVOTHYROXINE. [Concomitant]
     Active Substance: LEVOTHYROXINE
  8. NORCO [Concomitant]
     Active Substance: ACETAMINOPHEN\HYDROCODONE BITARTRATE
  9. LOSARTAN POTASSIUM. [Concomitant]
     Active Substance: LOSARTAN POTASSIUM
  10. FISH OIL [Concomitant]
     Active Substance: FISH OIL
  11. GABAPENTIN. [Concomitant]
     Active Substance: GABAPENTIN
  12. ATIVAN [Concomitant]
     Active Substance: LORAZEPAM
  13. NITROSTAT [Concomitant]
     Active Substance: NITROGLYCERIN
  14. GLIPIZIDE. [Concomitant]
     Active Substance: GLIPIZIDE
  15. BUPROPION. [Concomitant]
     Active Substance: BUPROPION
  16. VITAMIN B12 [Concomitant]
     Active Substance: CYANOCOBALAMIN

REACTIONS (1)
  - Death [None]

NARRATIVE: CASE EVENT DATE: 20200421
